FAERS Safety Report 20128297 (Version 2)
Quarter: 2021Q4

REPORT INFORMATION
  Report Type: Spontaneous
  Country: US (occurrence: US)
  Receive Date: 20211129
  Receipt Date: 20211223
  Transmission Date: 20220303
  Serious: Yes (Other)
  Sender: FDA-Public Use
  Company Number: US-CELGENE-USA-20211106889

PATIENT
  Sex: Female

DRUGS (3)
  1. REVLIMID [Suspect]
     Active Substance: LENALIDOMIDE
     Indication: Anaemia
     Dosage: 15 MILLIGRAM
     Route: 048
     Dates: start: 20181010
  2. REVLIMID [Suspect]
     Active Substance: LENALIDOMIDE
     Indication: Off label use
     Dosage: 10 MILLIGRAM
     Route: 048
     Dates: start: 201812
  3. REVLIMID [Suspect]
     Active Substance: LENALIDOMIDE
     Dosage: 10 MILLIGRAM
     Route: 048
     Dates: start: 201905

REACTIONS (2)
  - Neuropathy peripheral [Recovered/Resolved]
  - Diarrhoea [Recovered/Resolved]
